FAERS Safety Report 10237019 (Version 3)
Quarter: 2015Q3

REPORT INFORMATION
  Report Type: Report from Study
  Country: US (occurrence: US)
  Receive Date: 20140613
  Receipt Date: 20150722
  Transmission Date: 20151125
  Serious: Yes (Other)
  Sender: FDA-Public Use
  Company Number: US-BAYER-2014-052609

PATIENT
  Age: 69 Year
  Sex: Male

DRUGS (3)
  1. NEXAVAR [Suspect]
     Active Substance: SORAFENIB
     Indication: THYROID CANCER
     Dosage: 2 TABLETS DAILY
     Route: 048
  2. NEXAVAR [Suspect]
     Active Substance: SORAFENIB
     Indication: THYROID CANCER
     Dosage: 1 TABLET TWICE A DAY TO ALTERNATE WITH 1 TABLET IN THE MORNING AND 2 TABLETS IN THE EVENING
     Dates: start: 2012
  3. NEXAVAR [Suspect]
     Active Substance: SORAFENIB
     Indication: THYROID CANCER
     Dosage: 400 MG, BID
     Route: 048
     Dates: start: 20120531

REACTIONS (6)
  - Abasia [Unknown]
  - Blister [Unknown]
  - Peripheral swelling [Unknown]
  - Skin fissures [Not Recovered/Not Resolved]
  - Dry skin [Not Recovered/Not Resolved]
  - Burning sensation [Unknown]
